FAERS Safety Report 8036821-6 (Version None)
Quarter: 2012Q1

REPORT INFORMATION
  Report Type: 
  Country: None (occurrence: None)
  Receive Date: 20120111
  Receipt Date: 20120105
  Transmission Date: 20120608
  Serious: Yes (Other)
  Sender: FDA-Public Use
  Company Number: US-PFIZER INC-2012004781

PATIENT
  Sex: Female
  Weight: 72.109 kg

DRUGS (4)
  1. LYRICA [Suspect]
     Indication: HERPES ZOSTER
     Dosage: 100 MG, 3X/DAY
     Dates: start: 20111001
  2. LYRICA [Suspect]
     Indication: NEUROPATHY PERIPHERAL
  3. CALCIUM [Concomitant]
     Dosage: 600 MG, 2X/DAY
  4. VITAMIN D [Concomitant]
     Dosage: 1000 IU, DAILY

REACTIONS (2)
  - PANIC REACTION [None]
  - WEIGHT INCREASED [None]
